FAERS Safety Report 4690693-6 (Version None)
Quarter: 2005Q2

REPORT INFORMATION
  Report Type: 
  Country: None (occurrence: None)
  Receive Date: 20050615
  Receipt Date: 20050302
  Transmission Date: 20051028
  Serious: Yes (Hospitalization)
  Sender: FDA-Public Use
  Company Number: US-BRISTOL-MYERS SQUIBB COMPANY-12883674

PATIENT
  Age: 80 Year
  Sex: Female

DRUGS (5)
  1. CARBOPLATIN [Suspect]
     Indication: NON-SMALL CELL LUNG CANCER
     Dosage: THERAPY START DATE 11-FEB-05, DOSE DELAYED/OMITTED, WITHDRAWN.
     Route: 042
     Dates: start: 20050218, end: 20050218
  2. TAXOL [Suspect]
     Indication: NON-SMALL CELL LUNG CANCER
     Dosage: DOSE DELAYED/OMITTED, WITHDRAWN. THERAPY STATE DATE 11-FEB-05.
     Route: 042
     Dates: start: 20050218, end: 20050218
  3. BENADRYL [Concomitant]
     Dates: start: 20050211, end: 20050218
  4. DEXAMETHASONE [Concomitant]
     Dates: start: 20050211, end: 20050218
  5. ZANTAC [Concomitant]
     Dates: start: 20050211, end: 20050218

REACTIONS (3)
  - FEBRILE NEUTROPENIA [None]
  - PNEUMONITIS [None]
  - PNEUMOTHORAX [None]
